FAERS Safety Report 5899102-2 (Version None)
Quarter: 2008Q3

REPORT INFORMATION
  Report Type: 
  Country: None (occurrence: None)
  Receive Date: 20080925
  Receipt Date: 20080917
  Transmission Date: 20090109
  Serious: Yes (Death, Hospitalization)
  Sender: FDA-Public Use
  Company Number: CA-AMGEN-KDL305199

PATIENT
  Sex: Female

DRUGS (6)
  1. ENBREL [Suspect]
     Indication: RHEUMATOID ARTHRITIS
     Route: 058
     Dates: start: 20020527, end: 20070613
  2. PREDNISONE [Suspect]
     Dates: start: 19970101
  3. FOSAMAX [Concomitant]
     Dates: start: 20020101
  4. CITALOPRAM HYDROBROMIDE [Concomitant]
     Dates: start: 20030101
  5. HYDROXYCHLOROQUINE [Concomitant]
     Dates: start: 20050101
  6. DURAGESIC-100 [Concomitant]
     Dates: start: 20030101

REACTIONS (3)
  - CHOLECYSTITIS ACUTE [None]
  - PNEUMONIA [None]
  - SEPSIS [None]
